FAERS Safety Report 12759960 (Version 12)
Quarter: 2016Q4

REPORT INFORMATION
  Report Type: Spontaneous
  Country: AU (occurrence: AU)
  Receive Date: 20160919
  Receipt Date: 20161210
  Transmission Date: 20170207
  Serious: Yes (Life-Threatening, Hospitalization)
  Sender: FDA-Public Use
  Company Number: PHHY2016AU128667

PATIENT
  Age: 43 Year
  Sex: Male

DRUGS (1)
  1. DICLOFENAC [Suspect]
     Active Substance: DICLOFENAC
     Indication: BACK PAIN
     Dosage: 56 DF, QW (50 MG EACH)
     Route: 065

REACTIONS (6)
  - Renal tubular acidosis [Recovered/Resolved]
  - Microcytic anaemia [Unknown]
  - Overdose [Recovered/Resolved]
  - Hypokalaemia [Recovered/Resolved]
  - Pain in extremity [Unknown]
  - Hyperchloraemia [Unknown]

NARRATIVE: CASE EVENT DATE: 201602
